FAERS Safety Report 4867815-7 (Version None)
Quarter: 2005Q4

REPORT INFORMATION
  Report Type: 
  Country: None (occurrence: None)
  Receive Date: 20051227
  Receipt Date: 20051227
  Transmission Date: 20060501
  Serious: No
  Sender: FDA-Public Use
  Company Number: None

PATIENT
  Sex: Female
  Weight: 65.7716 kg

DRUGS (1)
  1. SYNTHROID [Suspect]

REACTIONS (4)
  - BLOOD THYROID STIMULATING HORMONE INCREASED [None]
  - DRUG EXPOSURE DURING PREGNANCY [None]
  - HYPOTHYROIDISM [None]
  - PREGNANCY [None]
